FAERS Safety Report 5125265-2 (Version None)
Quarter: 2006Q4

REPORT INFORMATION
  Report Type: 
  Country: None (occurrence: None)
  Receive Date: 20061006
  Receipt Date: 20060922
  Transmission Date: 20070319
  Serious: Yes (Hospitalization)
  Sender: FDA-Public Use
  Company Number: 2006001880

PATIENT
  Age: 68 Year
  Sex: 0

DRUGS (2)
  1. TARCEVA [Suspect]
     Dosage: ORAL
     Route: 048
  2. BEVACIZUMAB [Suspect]

REACTIONS (1)
  - DIVERTICULITIS [None]
